FAERS Safety Report 22345173 (Version 2)
Quarter: 2023Q2

REPORT INFORMATION
  Report Type: Spontaneous
  Country: GB (occurrence: GB)
  Receive Date: 20230519
  Receipt Date: 20230525
  Transmission Date: 20230722
  Serious: Yes (Other)
  Sender: FDA-Public Use
  Company Number: None

PATIENT
  Sex: Female

DRUGS (1)
  1. CLOPIDOGREL [Suspect]
     Active Substance: CLOPIDOGREL BISULFATE
     Indication: Product used for unknown indication
     Route: 065

REACTIONS (9)
  - Systemic inflammatory response syndrome [Unknown]
  - Pruritus [Unknown]
  - Blood blister [Unknown]
  - Urticaria [Unknown]
  - Arthralgia [Unknown]
  - Joint swelling [Unknown]
  - Pyrexia [Unknown]
  - Malaise [Unknown]
  - Loss of personal independence in daily activities [Unknown]
